FAERS Safety Report 10661634 (Version 2)
Quarter: 2014Q4

REPORT INFORMATION
  Report Type: Spontaneous
  Country: US (occurrence: None)
  Receive Date: 20141216
  Receipt Date: 20141229
  Transmission Date: 20150529
  Serious: Yes (Hospitalization, Other)
  Sender: FDA-Public Use
  Company Number: 2014-US-016149

PATIENT
  Age: 27 Year
  Sex: Female
  Weight: 61.2 kg

DRUGS (4)
  1. SYNTHROID [Concomitant]
     Active Substance: LEVOTHYROXINE SODIUM
  2. AMPHETAMINE SALTS (AMPHETAMINE SULFATE) [Concomitant]
  3. ZYRTEC [Concomitant]
     Active Substance: CETIRIZINE HYDROCHLORIDE
  4. XYREM [Suspect]
     Active Substance: SODIUM OXYBATE
     Indication: NARCOLEPSY
     Route: 048
     Dates: start: 201111

REACTIONS (3)
  - Flat affect [None]
  - Connective tissue disorder [None]
  - Cerebrovascular accident [None]

NARRATIVE: CASE EVENT DATE: 2014
